FAERS Safety Report 5026468-8 (Version None)
Quarter: 2006Q2

REPORT INFORMATION
  Report Type: 
  Country: None (occurrence: None)
  Receive Date: 20060613
  Receipt Date: 20060613
  Transmission Date: 20061013
  Serious: No
  Sender: FDA-Public Use
  Company Number: None

PATIENT
  Age: 57 Year
  Sex: Female
  Weight: 21.3191 kg

DRUGS (2)
  1. TRILEPTAL [Suspect]
     Indication: CONVULSION
     Dosage: 150 MG QID PO
     Route: 048
     Dates: start: 20060301, end: 20060606
  2. TRILEPTAL [Suspect]
     Indication: MOOD ALTERED
     Dosage: 150 MG QID PO
     Route: 048
     Dates: start: 20060301, end: 20060606

REACTIONS (1)
  - HYPONATRAEMIA [None]
